FAERS Safety Report 10276084 (Version 2)
Quarter: 2014Q3

REPORT INFORMATION
  Report Type: Spontaneous
  Country: US (occurrence: None)
  Receive Date: 20140701
  Receipt Date: 20140725
  Transmission Date: 20150326
  Serious: Yes (Other)
  Sender: FDA-Public Use
  Company Number: 2014-US-007514

PATIENT
  Age: 58 Year
  Sex: Male
  Weight: 111.1 kg

DRUGS (12)
  1. COLCRYS [Concomitant]
     Active Substance: COLCHICINE
  2. NUVIGIL [Concomitant]
     Active Substance: ARMODAFINIL
  3. XYREM [Suspect]
     Active Substance: SODIUM OXYBATE
     Indication: NARCOLEPSY
     Route: 048
     Dates: start: 201304
  4. HUMIRA (ADALIMUMAB) [Concomitant]
  5. ZIAC (BISOPROLOL FUMARATE, HYDROCHLOROTHIAZIDE) [Concomitant]
  6. XYREM [Suspect]
     Active Substance: SODIUM OXYBATE
     Indication: CATAPLEXY
     Route: 048
     Dates: start: 201304
  7. SAVELLA [Concomitant]
     Active Substance: MILNACIPRAN HYDROCHLORIDE
  8. PRAMIPEXOLE (PRAMIPEXOLE) [Concomitant]
     Active Substance: PRAMIPEXOLE
  9. CELEBREX [Concomitant]
     Active Substance: CELECOXIB
  10. LOSARTAN (LOSARTAN POTASSIUM) [Concomitant]
  11. NORTRIPTYLINE (NORTRIPTYLINE) [Concomitant]
     Active Substance: NORTRIPTYLINE
  12. ATORVASTATIN (ATORVASTATIN CALCIUM) [Concomitant]

REACTIONS (6)
  - Dental implantation [None]
  - Loss of consciousness [None]
  - Rheumatoid arthritis [None]
  - Tooth extraction [None]
  - Lymphoedema [None]
  - Condition aggravated [None]

NARRATIVE: CASE EVENT DATE: 2014
